FAERS Safety Report 4867628-6 (Version None)
Quarter: 2005Q4

REPORT INFORMATION
  Report Type: 
  Country: None (occurrence: None)
  Receive Date: 20051222
  Receipt Date: 20051212
  Transmission Date: 20060501
  Serious: Yes (Other)
  Sender: FDA-Public Use
  Company Number: AND_0259_2005

PATIENT
  Age: 39 Year
  Sex: Female
  Weight: 102.5129 kg

DRUGS (3)
  1. METFORMIN HCL [Suspect]
     Indication: POLYCYSTIC OVARIES
     Dosage: 2 TAB QD PO
     Route: 048
     Dates: start: 20050901, end: 20051211
  2. METFORMIN HCL [Concomitant]
  3. PRILOSEC [Concomitant]

REACTIONS (5)
  - DRUG EFFECT DECREASED [None]
  - MEDICATION RESIDUE [None]
  - OLIGOMENORRHOEA [None]
  - PHARMACEUTICAL PRODUCT COMPLAINT [None]
  - UTERINE PAIN [None]
